FAERS Safety Report 7336294-2 (Version None)
Quarter: 2011Q1

REPORT INFORMATION
  Report Type: 
  Country: None (occurrence: None)
  Receive Date: 20110307
  Receipt Date: 20110302
  Transmission Date: 20110831
  Serious: Yes (Hospitalization, Disabling, Other)
  Sender: FDA-Public Use
  Company Number: US-PFIZER INC-2010175752

PATIENT
  Sex: Male

DRUGS (2)
  1. MORPHINE [Concomitant]
     Indication: ARTHROPATHY
     Dosage: UNK
     Dates: start: 20030101, end: 20090101
  2. CHANTIX [Suspect]
     Indication: SMOKING CESSATION THERAPY
     Dosage: UNK
     Dates: start: 20080101, end: 20080101

REACTIONS (6)
  - MENTAL DISORDER [None]
  - ANXIETY [None]
  - SUICIDE ATTEMPT [None]
  - PANIC ATTACK [None]
  - DEPRESSION [None]
  - INTENTIONAL OVERDOSE [None]
